FAERS Safety Report 9805314 (Version 1)
Quarter: 2014Q1

REPORT INFORMATION
  Report Type: Spontaneous
  Country: FR (occurrence: FR)
  Receive Date: 20140109
  Receipt Date: 20140109
  Transmission Date: 20141002
  Serious: Yes (Hospitalization)
  Sender: FDA-Public Use
  Company Number: FR-ROCHE-1330336

PATIENT
  Age: 57 Year
  Sex: Male

DRUGS (5)
  1. ROVALCYTE [Suspect]
     Indication: CYTOMEGALOVIRUS INFECTION
     Dosage: TREATMENT DURATION= 3 DAYS
     Route: 048
     Dates: start: 20131216, end: 20131218
  2. ACUPAN [Suspect]
     Indication: PRODUCT USED FOR UNKNOWN INDICATION
     Dosage: TREATMENT DURATION= 8 DAYS
     Route: 065
     Dates: start: 20131211, end: 20131218
  3. MORPHINE [Suspect]
     Indication: PRODUCT USED FOR UNKNOWN INDICATION
     Route: 048
     Dates: start: 20131211, end: 20131218
  4. EUPRESSYL [Suspect]
     Indication: PRODUCT USED FOR UNKNOWN INDICATION
     Route: 048
     Dates: start: 20131211, end: 20131219
  5. MYFORTIC [Concomitant]
     Route: 048
     Dates: start: 201312, end: 20131218

REACTIONS (4)
  - Confusional state [Recovered/Resolved]
  - Hallucination [Recovered/Resolved]
  - Dysarthria [Recovered/Resolved]
  - Dyskinesia [Recovered/Resolved]
